FAERS Safety Report 24067639 (Version 1)
Quarter: 2024Q3

REPORT INFORMATION
  Report Type: Report from Study
  Country: DE (occurrence: DE)
  Receive Date: 20240710
  Receipt Date: 20240710
  Transmission Date: 20241017
  Serious: Yes (Life-Threatening, Other)
  Sender: RANBAXY
  Company Number: DE-SUN PHARMACEUTICAL INDUSTRIES LTD-2024R1-455833

PATIENT
  Sex: Male

DRUGS (7)
  1. DEXAMETHASONE [Suspect]
     Active Substance: DEXAMETHASONE
     Indication: Diffuse large B-cell lymphoma
     Dosage: 10 MILLIGRAM/SQ. METER, QD, 5 DAYS EVERY 4 WEEKS
     Route: 065
  2. CRIZOTINIB [Suspect]
     Active Substance: CRIZOTINIB
     Indication: Diffuse large B-cell lymphoma
     Dosage: 370 MILLIGRAM/SQ. METER
     Route: 065
  3. CYTARABINE [Suspect]
     Active Substance: CYTARABINE
     Indication: Diffuse large B-cell lymphoma
     Dosage: UNK
     Route: 037
  4. METHOTREXATE [Suspect]
     Active Substance: METHOTREXATE
     Indication: Diffuse large B-cell lymphoma
     Dosage: UNK
     Route: 037
  5. PREDNISOLONE [Suspect]
     Active Substance: PREDNISOLONE
     Indication: Diffuse large B-cell lymphoma
     Dosage: UNK
     Route: 037
  6. VINBLASTINE [Suspect]
     Active Substance: VINBLASTINE
     Indication: Diffuse large B-cell lymphoma
     Dosage: 6 MILLIGRAM/SQ. METER
     Route: 065
  7. VINBLASTINE [Suspect]
     Active Substance: VINBLASTINE
     Dosage: 4 MILLIGRAM/SQ. METER
     Route: 065

REACTIONS (4)
  - Neutropenia [Unknown]
  - Febrile neutropenia [Unknown]
  - Ileus paralytic [Unknown]
  - Peritonitis [Unknown]
